FAERS Safety Report 6732257-6 (Version None)
Quarter: 2010Q2

REPORT INFORMATION
  Report Type: 
  Country: None (occurrence: None)
  Receive Date: 20100519
  Receipt Date: 20100512
  Transmission Date: 20101027
  Serious: Yes (Disabling)
  Sender: FDA-Public Use
  Company Number: B0628404A

PATIENT
  Sex: Female

DRUGS (5)
  1. FLUTIDE [Suspect]
     Indication: ASTHMA PROPHYLAXIS
     Dosage: 200MCG PER DAY
     Route: 055
     Dates: start: 20041110, end: 20100120
  2. DOXAZOSIN MESYLATE [Concomitant]
     Indication: HYPERTENSION
     Dosage: 1MG PER DAY
     Route: 048
  3. THEOLONG [Concomitant]
     Indication: BRONCHIECTASIS
     Dosage: 200MG PER DAY
     Route: 048
  4. HOKUNALIN [Concomitant]
     Indication: BRONCHIECTASIS
     Dosage: 2MG PER DAY
     Route: 062
  5. NORVASC [Concomitant]
     Dosage: 5MG PER DAY
     Route: 048

REACTIONS (4)
  - BLINDNESS [None]
  - GLAUCOMA [None]
  - INTRAOCULAR PRESSURE INCREASED [None]
  - VISUAL FIELD DEFECT [None]
